FAERS Safety Report 15399457 (Version 1)
Quarter: 2018Q3

REPORT INFORMATION
  Report Type: Spontaneous
  Country: US (occurrence: US)
  Receive Date: 20180918
  Receipt Date: 20180918
  Transmission Date: 20181010
  Serious: No
  Sender: FDA-Public Use
  Company Number: US-AMGEN-USASP2018119605

PATIENT
  Age: 73 Year
  Sex: Male

DRUGS (13)
  1. NEULASTA [Suspect]
     Active Substance: PEGFILGRASTIM
     Indication: PROPHYLAXIS
     Dosage: UNK
     Route: 065
     Dates: start: 2018, end: 2018
  2. CYCLOPHOSPHAMIDE. [Concomitant]
     Active Substance: CYCLOPHOSPHAMIDE
     Indication: EPSTEIN-BARR VIRUS ANTIBODY POSITIVE
  3. DOXORUBICIN [Concomitant]
     Active Substance: DOXORUBICIN
     Indication: DIFFUSE LARGE B-CELL LYMPHOMA
     Dosage: UNK UNK, Q3WK
     Dates: start: 201806
  4. RITUXIMAB. [Concomitant]
     Active Substance: RITUXIMAB
     Indication: EPSTEIN-BARR VIRUS ANTIBODY POSITIVE
  5. NEUPOGEN [Suspect]
     Active Substance: FILGRASTIM
     Indication: PROPHYLAXIS
     Dosage: UNK UNK, QD (480MCG/0.8ML INJECTED INTO HIS ABDOEMEN ONCE DAILY FOR 8?9 DAYS)
     Route: 065
     Dates: start: 201806, end: 2018
  6. DOXORUBICIN [Concomitant]
     Active Substance: DOXORUBICIN
     Indication: EPSTEIN-BARR VIRUS ANTIBODY POSITIVE
  7. VINCRISTINE [Concomitant]
     Active Substance: VINCRISTINE
     Indication: B-CELL LYMPHOMA
     Dosage: UNK UNK, Q3WK
     Dates: start: 201806
  8. RITUXIMAB. [Concomitant]
     Active Substance: RITUXIMAB
     Indication: B-CELL LYMPHOMA
     Dosage: UNK UNK, Q3WK
     Dates: start: 201806
  9. PREDNISOLONE. [Concomitant]
     Active Substance: PREDNISOLONE
     Indication: EPSTEIN-BARR VIRUS ANTIBODY POSITIVE
  10. NEUPOGEN [Suspect]
     Active Substance: FILGRASTIM
     Dosage: UNK UNK, QD (480MCG/0.8ML ONCE DAILY FOR 5 DAYS)
     Route: 065
     Dates: start: 2018
  11. CYCLOPHOSPHAMIDE. [Concomitant]
     Active Substance: CYCLOPHOSPHAMIDE
     Indication: B-CELL LYMPHOMA
     Dosage: UNK UNK, Q3WK
     Dates: start: 201806
  12. VINCRISTINE [Concomitant]
     Active Substance: VINCRISTINE
     Indication: EPSTEIN-BARR VIRUS ANTIBODY POSITIVE
  13. PREDNISOLONE. [Concomitant]
     Active Substance: PREDNISOLONE
     Indication: B-CELL LYMPHOMA
     Dosage: UNK UNK, Q3WK
     Dates: start: 201806

REACTIONS (4)
  - Musculoskeletal stiffness [Not Recovered/Not Resolved]
  - Pain in extremity [Unknown]
  - Arthralgia [Unknown]
  - Bone pain [Unknown]

NARRATIVE: CASE EVENT DATE: 2018
